FAERS Safety Report 7516932-1 (Version None)
Quarter: 2011Q2

REPORT INFORMATION
  Report Type: 
  Country: None (occurrence: None)
  Receive Date: 20110526
  Receipt Date: 20110526
  Transmission Date: 20111010
  Serious: Yes (Other)
  Sender: FDA-Public Use
  Company Number: None

PATIENT
  Age: 50 Year
  Sex: Female
  Weight: 61.2356 kg

DRUGS (1)
  1. AZITHROMYCIN [Suspect]
     Indication: SINUSITIS
     Dosage: FIRST DOSE 500MG ONCE PO
     Route: 048
     Dates: start: 20110524, end: 20110524

REACTIONS (6)
  - BODY TEMPERATURE INCREASED [None]
  - CHILLS [None]
  - DIARRHOEA [None]
  - BACK PAIN [None]
  - DEHYDRATION [None]
  - TREMOR [None]
